FAERS Safety Report 5648429-8 (Version None)
Quarter: 2008Q1

REPORT INFORMATION
  Report Type: 
  Country: None (occurrence: None)
  Receive Date: 20080303
  Receipt Date: 20080303
  Transmission Date: 20080703
  Serious: No
  Sender: FDA-Public Use
  Company Number: None

PATIENT

DRUGS (2)
  1. VYTORIN [Suspect]
  2. ZETIA [Suspect]

REACTIONS (6)
  - GENERAL PHYSICAL HEALTH DETERIORATION [None]
  - MYALGIA [None]
  - PAIN [None]
  - POSTURE ABNORMAL [None]
  - RENAL DISORDER [None]
  - WEIGHT DECREASED [None]
